FAERS Safety Report 21541645 (Version 1)
Quarter: 2022Q4

REPORT INFORMATION
  Report Type: Spontaneous
  Country: CA (occurrence: None)
  Receive Date: 20221102
  Receipt Date: 20221102
  Transmission Date: 20230113
  Serious: Yes (Hospitalization, Other)
  Sender: FDA-Public Use
  Company Number: 2022A358622

PATIENT
  Age: 18 Year
  Sex: Male

DRUGS (1)
  1. QUETIAPINE [Suspect]
     Active Substance: QUETIAPINE
     Indication: Major depression
     Route: 048

REACTIONS (3)
  - Akathisia [Recovered/Resolved]
  - Dystonia [Recovered/Resolved]
  - Off label use [Recovered/Resolved]
